FAERS Safety Report 10153808 (Version 1)
Quarter: 2014Q2

REPORT INFORMATION
  Report Type: Spontaneous
  Country: GB (occurrence: GB)
  Receive Date: 20140506
  Receipt Date: 20140506
  Transmission Date: 20141212
  Serious: Yes (Other)
  Sender: FDA-Public Use
  Company Number: GB-DRREDDYS-GER/UKI/14/0040050

PATIENT
  Sex: 0

DRUGS (1)
  1. AMLODIPINE [Suspect]
     Indication: PRODUCT USED FOR UNKNOWN INDICATION
     Dates: start: 20140203, end: 20140302

REACTIONS (4)
  - Blepharitis [Unknown]
  - Ocular discomfort [Not Recovered/Not Resolved]
  - Paraesthesia [Unknown]
  - Paraesthesia [Not Recovered/Not Resolved]
